FAERS Safety Report 4593973-8 (Version None)
Quarter: 2005Q1

REPORT INFORMATION
  Report Type: 
  Country: None (occurrence: None)
  Receive Date: 20050218
  Receipt Date: 20050207
  Transmission Date: 20050727
  Serious: Yes (Other)
  Sender: FDA-Public Use
  Company Number: 200510094BNE

PATIENT
  Age: 57 Year
  Sex: Male
  Weight: 89 kg

DRUGS (11)
  1. SORAFENIB [Concomitant]
     Indication: METASTATIC MALIGNANT MELANOMA
     Dosage: 200 MG, BID, ORAL
     Route: 048
     Dates: start: 20040407, end: 20040909
  2. DACARBAZINE [Suspect]
     Indication: METASTATIC MALIGNANT MELANOMA
     Dosage: 2100 MG, TOTAL DAILY
     Dates: start: 20040721
  3. CO-DYDRAMOL [Concomitant]
  4. DIHYDROCODEINE [Concomitant]
  5. MOVICOL [Concomitant]
  6. GABAPENTIN [Concomitant]
  7. FLUCONAZOLE [Concomitant]
  8. ASPIRIN [Concomitant]
  9. CO-DYDRAMOL [Concomitant]
  10. ACETAMINOPHEN [Concomitant]
  11. IBULEVE [Concomitant]

REACTIONS (1)
  - LIPASE INCREASED [None]
